FAERS Safety Report 5606494-8 (Version None)
Quarter: 2008Q1

REPORT INFORMATION
  Report Type: 
  Country: None (occurrence: None)
  Receive Date: 20080129
  Receipt Date: 20080123
  Transmission Date: 20080703
  Serious: Yes (Other)
  Sender: FDA-Public Use
  Company Number: A0666858A

PATIENT
  Age: 55 Year
  Sex: Female

DRUGS (10)
  1. AVANDIA [Suspect]
     Route: 048
     Dates: start: 20051201, end: 20060117
  2. GLIPIZIDE [Concomitant]
     Route: 048
  3. NEURONTIN [Concomitant]
     Route: 048
  4. KLOR-CON [Concomitant]
     Route: 048
  5. TENORMIN [Concomitant]
     Route: 048
  6. LOVASTATIN [Concomitant]
     Route: 048
  7. LASIX [Concomitant]
     Route: 048
  8. INSULIN [Concomitant]
  9. CAPITROL CREAM SHAMPOO [Concomitant]
  10. ASPIRIN [Concomitant]
     Route: 048

REACTIONS (4)
  - BLOOD GLUCOSE DECREASED [None]
  - CARDIAC ARREST [None]
  - CIRCULATORY COLLAPSE [None]
  - DRUG INEFFECTIVE [None]
